FAERS Safety Report 6683650-1 (Version None)
Quarter: 2010Q2

REPORT INFORMATION
  Report Type: 
  Country: None (occurrence: None)
  Receive Date: 20100416
  Receipt Date: 20100408
  Transmission Date: 20101027
  Serious: Yes (Hospitalization)
  Sender: FDA-Public Use
  Company Number: US-BIOGENIDEC-2010BI010534

PATIENT
  Age: 32 Year
  Sex: Female

DRUGS (2)
  1. TYSABRI [Suspect]
     Indication: MULTIPLE SCLEROSIS
     Route: 042
     Dates: start: 20080216, end: 20090203
  2. TYSABRI [Suspect]
     Route: 042
     Dates: start: 20091121

REACTIONS (10)
  - ALOPECIA [None]
  - ARTHRALGIA [None]
  - CHEST PAIN [None]
  - CHOLECYSTECTOMY [None]
  - HEADACHE [None]
  - MULTIPLE ALLERGIES [None]
  - NASOPHARYNGITIS [None]
  - OROPHARYNGEAL PAIN [None]
  - OVARIAN CYST [None]
  - WEIGHT DECREASED [None]
